FAERS Safety Report 8309769-7 (Version None)
Quarter: 2012Q2

REPORT INFORMATION
  Report Type: 
  Country: None (occurrence: None)
  Receive Date: 20120425
  Receipt Date: 20120420
  Transmission Date: 20120825
  Serious: Yes (Death, Hospitalization, Other)
  Sender: FDA-Public Use
  Company Number: PHFR2012GB002436

PATIENT
  Sex: Male

DRUGS (1)
  1. CLOZARIL [Suspect]
     Indication: SCHIZOPHRENIA
     Route: 048
     Dates: start: 20030909

REACTIONS (6)
  - DYSPNOEA [None]
  - PULMONARY EMBOLISM [None]
  - SINUS DISORDER [None]
  - FACIAL BONES FRACTURE [None]
  - CENTRAL OBESITY [None]
  - PNEUMONIA [None]
